FAERS Safety Report 20035207 (Version 2)
Quarter: 2022Q1

REPORT INFORMATION
  Report Type: Spontaneous
  Country: US (occurrence: US)
  Receive Date: 20211104
  Receipt Date: 20220215
  Transmission Date: 20220423
  Serious: Yes (Other)
  Sender: FDA-Public Use
  Company Number: US-JNJFOC-20211061861

PATIENT
  Age: 23 Year
  Sex: Female

DRUGS (2)
  1. SPRAVATO [Suspect]
     Active Substance: ESKETAMINE
     Indication: Depression
     Dosage: 56 MG ,TOTAL 8 DOSES
     Dates: start: 20211008, end: 20211101
  2. SPRAVATO [Suspect]
     Active Substance: ESKETAMINE
     Dosage: 84 MG,TOTAL 9 DOSES
     Dates: start: 20211108, end: 20220118

REACTIONS (2)
  - Suicidal ideation [Recovering/Resolving]
  - Dissociation [Recovering/Resolving]
